FAERS Safety Report 10950613 (Version 1)
Quarter: 2015Q1

REPORT INFORMATION
  Report Type: Spontaneous
  Country: US (occurrence: US)
  Receive Date: 20150324
  Receipt Date: 20150324
  Transmission Date: 20150721
  Serious: No
  Sender: FDA-Public Use
  Company Number: US-GLAXOSMITHKLINE-US2015GSK038137

PATIENT
  Sex: Female

DRUGS (1)
  1. LOVAZA [Suspect]
     Active Substance: OMEGA-3-ACID ETHYL ESTERS
     Indication: BLOOD TRIGLYCERIDES INCREASED
     Dosage: 1 G, U

REACTIONS (5)
  - Fall [Recovered/Resolved]
  - Back injury [Recovered/Resolved]
  - Accident at home [Recovered/Resolved]
  - Peripheral swelling [Not Recovered/Not Resolved]
  - Ligament sprain [Not Recovered/Not Resolved]
